FAERS Safety Report 7930699-4 (Version None)
Quarter: 2011Q4

REPORT INFORMATION
  Report Type: 
  Country: None (occurrence: None)
  Receive Date: 20111121
  Receipt Date: 20111111
  Transmission Date: 20120403
  Serious: Yes (Other)
  Sender: FDA-Public Use
  Company Number: US-ASTRAZENECA-2011SE68734

PATIENT
  Age: 914 Month
  Sex: Female
  Weight: 68 kg

DRUGS (5)
  1. DOCETAXEL [Suspect]
     Route: 042
     Dates: start: 20111006, end: 20111006
  2. VANDETANIB [Suspect]
     Indication: OVARIAN EPITHELIAL CANCER
     Route: 048
     Dates: start: 20110602, end: 20111009
  3. VANDETANIB [Suspect]
     Route: 048
     Dates: start: 20111016
  4. DOCETAXEL [Suspect]
     Indication: OVARIAN EPITHELIAL CANCER
     Route: 042
     Dates: start: 20110602, end: 20110602
  5. DOCETAXEL [Suspect]
     Dosage: CYCLE 6
     Route: 042
     Dates: start: 20110915, end: 20110915

REACTIONS (2)
  - WHITE BLOOD CELL COUNT DECREASED [None]
  - NEUTROPHIL COUNT DECREASED [None]
